FAERS Safety Report 22030163 (Version 2)
Quarter: 2023Q1

REPORT INFORMATION
  Report Type: Report from Study
  Country: MY (occurrence: MY)
  Receive Date: 20230223
  Receipt Date: 20230227
  Transmission Date: 20230418
  Serious: Yes (Death, Life-Threatening, Disabling, Other)
  Sender: FDA-Public Use
  Company Number: MY-002147023-NVSC2023MY042292

PATIENT
  Age: 20 Year

DRUGS (1)
  1. GLIVEC [Suspect]
     Active Substance: IMATINIB MESYLATE
     Indication: Chronic myeloid leukaemia
     Dosage: 400 MG, QD
     Route: 048
     Dates: start: 2017, end: 2020

REACTIONS (4)
  - Death [Fatal]
  - Respiratory failure [Unknown]
  - Chronic graft versus host disease [Unknown]
  - Scleroderma [Unknown]

NARRATIVE: CASE EVENT DATE: 20190101
